FAERS Safety Report 21943443 (Version 3)
Quarter: 2023Q1

REPORT INFORMATION
  Report Type: Spontaneous
  Country: US (occurrence: US)
  Receive Date: 20230202
  Receipt Date: 20230307
  Transmission Date: 20230418
  Serious: Yes (Hospitalization, Other)
  Sender: FDA-Public Use
  Company Number: US-UNITED THERAPEUTICS-UNT-2023-002656

PATIENT
  Age: 68 Year
  Sex: Female

DRUGS (5)
  1. REMODULIN [Suspect]
     Active Substance: TREPROSTINIL
     Indication: Pulmonary arterial hypertension
     Dosage: 0.022 ?G/KG, CONTINUING
     Route: 041
     Dates: end: 202301
  2. REMODULIN [Suspect]
     Active Substance: TREPROSTINIL
     Dosage: 2-30 NKM (0.002-0.030 ?G/KG) , CONTINUING
     Route: 041
     Dates: start: 202301, end: 202301
  3. REMODULIN [Suspect]
     Active Substance: TREPROSTINIL
     Dosage: 0.016 ?G/KG (AT AN INFUSION RATE OF 42ML/24HOUR), CONTINUING
     Route: 041
     Dates: start: 202301
  4. REMODULIN [Suspect]
     Active Substance: TREPROSTINIL
     Dosage: 0.019 ?G/KG (AT AN INFUSION RATE 25ML/24HR), CONTINUING
     Route: 041
  5. REMODULIN [Suspect]
     Active Substance: TREPROSTINIL
     Dosage: UNK, CONTINUING
     Route: 041
     Dates: start: 20210325

REACTIONS (9)
  - Vascular device occlusion [Unknown]
  - Dyspnoea at rest [Unknown]
  - Pain in extremity [Unknown]
  - Arthralgia [Unknown]
  - Headache [Unknown]
  - Diarrhoea [Unknown]
  - Pain in jaw [Unknown]
  - Dyspnoea [Unknown]
  - Anaemia [Unknown]

NARRATIVE: CASE EVENT DATE: 20230101
